FAERS Safety Report 6511748-7 (Version None)
Quarter: 2009Q4

REPORT INFORMATION
  Report Type: 
  Country: None (occurrence: None)
  Receive Date: 20091222
  Receipt Date: 20090401
  Transmission Date: 20100525
  Serious: No
  Sender: FDA-Public Use
  Company Number: US-ASTRAZENECA-2009UW08319

PATIENT
  Sex: Male
  Weight: 204.1 kg

DRUGS (8)
  1. CRESTOR [Suspect]
     Indication: CEREBROVASCULAR ACCIDENT
     Route: 048
     Dates: start: 20090331
  2. CRESTOR [Suspect]
     Indication: BLOOD CHOLESTEROL INCREASED
     Route: 048
     Dates: start: 20090331
  3. BENAZEPRIL HYDROCHLORIDE [Concomitant]
     Route: 048
  4. PLAVIX [Concomitant]
     Route: 048
  5. FLOMAX [Concomitant]
     Route: 048
  6. PROSCAR [Concomitant]
     Route: 048
  7. IMDUR [Concomitant]
     Route: 048
  8. GLYBURIDE [Concomitant]
     Route: 048

REACTIONS (3)
  - ARTHRALGIA [None]
  - ASTHENIA [None]
  - INSOMNIA [None]
